FAERS Safety Report 24993360 (Version 1)
Quarter: 2025Q1

REPORT INFORMATION
  Report Type: Spontaneous
  Country: US (occurrence: US)
  Receive Date: 20250221
  Receipt Date: 20250221
  Transmission Date: 20250409
  Serious: No
  Sender: AMNEAL
  Company Number: US-AMNEAL PHARMACEUTICALS-2024-AMRX-02665

PATIENT
  Sex: Female
  Weight: 45.805 kg

DRUGS (1)
  1. EMVERM [Suspect]
     Active Substance: MEBENDAZOLE
     Indication: Enterobiasis
     Dosage: 100 MG; 1 TAB EVERY 2 WEEKS X 14 DAYS
     Route: 048
     Dates: start: 20240720

REACTIONS (5)
  - Abdominal distension [Unknown]
  - Malaise [Unknown]
  - Enterobiasis [Unknown]
  - Insomnia [Unknown]
  - Constipation [Unknown]
